FAERS Safety Report 11952205 (Version 1)
Quarter: 2016Q1

REPORT INFORMATION
  Report Type: Report from Study
  Country: ES (occurrence: ES)
  Receive Date: 20160125
  Receipt Date: 20160125
  Transmission Date: 20160526
  Serious: Yes (Hospitalization)
  Sender: FDA-Public Use
  Company Number: ES-ABBVIE-15P-144-1405710-00

PATIENT
  Sex: Female

DRUGS (1)
  1. DUODOPA [Suspect]
     Active Substance: CARBIDOPA\LEVODOPA
     Indication: PARKINSON^S DISEASE
     Dosage: MD 8.5 ML ; CD 3 ML/HR ; ED 1.3 ML FOR 16 HOURS
     Route: 050
     Dates: start: 20150209

REACTIONS (13)
  - Nervousness [Recovering/Resolving]
  - Drug ineffective [Unknown]
  - Drug ineffective [Unknown]
  - Dyspnoea [Recovering/Resolving]
  - Stoma site infection [Recovering/Resolving]
  - Musculoskeletal stiffness [Unknown]
  - Granuloma [Unknown]
  - Dyskinesia [Unknown]
  - Candida infection [Unknown]
  - Pain [Unknown]
  - Malaise [Unknown]
  - Dyspnoea [Unknown]
  - Freezing phenomenon [Unknown]

NARRATIVE: CASE EVENT DATE: 2015
